FAERS Safety Report 16266509 (Version 2)
Quarter: 2019Q2

REPORT INFORMATION
  Report Type: Report from Study
  Country: US (occurrence: US)
  Receive Date: 20190502
  Receipt Date: 20190523
  Transmission Date: 20190711
  Serious: Yes (Death, Other)
  Sender: FDA-Public Use
  Company Number: US-GILEAD-2019-0405350

PATIENT
  Age: 84 Year
  Sex: Male
  Weight: 94.33 kg

DRUGS (1)
  1. IDELALISIB [Suspect]
     Active Substance: IDELALISIB
     Indication: NON-HODGKIN^S LYMPHOMA
     Dosage: 1 DOSAGE FORM, BID
     Route: 048
     Dates: start: 20190128

REACTIONS (3)
  - Failure to thrive [Fatal]
  - Pneumonia [Fatal]
  - B-cell lymphoma [Fatal]
